FAERS Safety Report 16498994 (Version 1)
Quarter: 2019Q2

REPORT INFORMATION
  Report Type: Spontaneous
  Country: US (occurrence: US)
  Receive Date: 20190630
  Receipt Date: 20190630
  Transmission Date: 20190711
  Serious: No
  Sender: FDA-Public Use
  Company Number: US-009507513-1906USA010891

PATIENT
  Sex: Female

DRUGS (1)
  1. NEXPLANON [Suspect]
     Active Substance: ETONOGESTREL
     Dosage: ONE NEXPLANON IMPLANT 68 MG/EVERY 3 YEARS; INSERTED IN THE UPPER ARM
     Route: 059

REACTIONS (3)
  - Complication of device removal [Unknown]
  - Weight increased [Unknown]
  - Complication associated with device [Unknown]
